FAERS Safety Report 24833134 (Version 4)
Quarter: 2025Q3

REPORT INFORMATION
  Report Type: Report from Study
  Country: US (occurrence: US)
  Receive Date: 20250111
  Receipt Date: 20250704
  Transmission Date: 20251021
  Serious: Yes (Hospitalization)
  Sender: ACADIA PHARMACEUTICALS
  Company Number: US-ACADIA PHARMACEUTICALS INC.-ACA-2025-TRF-000199

PATIENT

DRUGS (1)
  1. DAYBUE [Suspect]
     Active Substance: TROFINETIDE
     Indication: Rett syndrome
     Dosage: 30 MILLILITER, BID
     Route: 048

REACTIONS (5)
  - Rhinovirus infection [Not Recovered/Not Resolved]
  - Tendon operation [Not Recovered/Not Resolved]
  - Diarrhoea [Recovering/Resolving]
  - Diarrhoea [Not Recovered/Not Resolved]
  - Drug ineffective [Not Recovered/Not Resolved]
